FAERS Safety Report 15740287 (Version 6)
Quarter: 2020Q3

REPORT INFORMATION
  Report Type: Report from Study
  Country: JP (occurrence: JP)
  Receive Date: 20181219
  Receipt Date: 20200924
  Transmission Date: 20201102
  Serious: Yes (Hospitalization, Other)
  Sender: FDA-Public Use
  Company Number: JP-VIIV HEALTHCARE LIMITED-JP2018JPN226253

PATIENT
  Age: 36 Year
  Sex: Male

DRUGS (10)
  1. ABACAVIRSULPHATE+DOLUTEGRAVIR+LAMIVUDINE [Suspect]
     Active Substance: ABACAVIR SULFATE\DOLUTEGRAVIR SODIUM\LAMIVUDINE
     Indication: HIV INFECTION
     Dosage: 1 DF, 1D
     Route: 048
     Dates: start: 20160715, end: 20181114
  2. SAMTIREL ORAL SUSPENSION [Concomitant]
     Indication: PROPHYLAXIS
     Dosage: 1500 MG, 1D
     Dates: start: 20160712, end: 20180712
  3. FLUCONAZOLE CAPSULE [Concomitant]
     Active Substance: FLUCONAZOLE
     Indication: PROPHYLAXIS
     Dosage: UNK
     Dates: start: 20170924, end: 20171005
  4. TAKECAB [Concomitant]
     Active Substance: VONOPRAZAN FUMARATE
     Indication: PROPHYLAXIS
     Dosage: UNK
     Dates: start: 20170811, end: 20180524
  5. ALOXI [Concomitant]
     Active Substance: PALONOSETRON HYDROCHLORIDE
     Indication: PROPHYLAXIS
     Dosage: UNK
     Dates: start: 20170828, end: 20170828
  6. POLARAMINE [Concomitant]
     Active Substance: DEXCHLORPHENIRAMINE MALEATE
     Indication: PROPHYLAXIS
     Dosage: UNK
     Dates: start: 20170913, end: 20171108
  7. BENAMBAX [Concomitant]
     Active Substance: PENTAMIDINE
     Indication: PROPHYLAXIS
     Dosage: UNK
     Dates: start: 20170822, end: 20170822
  8. GRANISETRON [Concomitant]
     Active Substance: GRANISETRON
     Indication: PROPHYLAXIS
     Dosage: UNK
     Dates: start: 20170914, end: 20171107
  9. EMEND CAPSULES [Concomitant]
     Indication: PROPHYLAXIS
     Dosage: UNK
     Dates: start: 20170914, end: 20171103
  10. FEBURIC [Concomitant]
     Active Substance: FEBUXOSTAT
     Dosage: UNK
     Dates: end: 20180524

REACTIONS (18)
  - Hyperglycaemia [Recovering/Resolving]
  - Hypokalaemia [Recovering/Resolving]
  - Blood lactate dehydrogenase increased [Recovering/Resolving]
  - Febrile neutropenia [Recovered/Resolved]
  - Pain in jaw [Recovering/Resolving]
  - Gastric ulcer [Recovering/Resolving]
  - Blood beta-D-glucan increased [Recovered/Resolved]
  - Hyperuricaemia [Recovered/Resolved]
  - Lymphoma [Recovering/Resolving]
  - Insomnia [Recovered/Resolved]
  - Headache [Recovering/Resolving]
  - Stomatitis [Recovering/Resolving]
  - Anaemia [Recovering/Resolving]
  - Fluid retention [Recovered/Resolved]
  - Haemorrhoids [Recovering/Resolving]
  - Neutropenia [Recovering/Resolving]
  - C-reactive protein increased [Recovering/Resolving]
  - Hyperphosphataemia [Recovering/Resolving]

NARRATIVE: CASE EVENT DATE: 201707
